FAERS Safety Report 7153758-5 (Version None)
Quarter: 2010Q4

REPORT INFORMATION
  Report Type: 
  Country: None (occurrence: None)
  Receive Date: 20101213
  Receipt Date: 20091112
  Transmission Date: 20110411
  Serious: No
  Sender: FDA-Public Use
  Company Number: US-ABBOTT-09P-163-0609062-00

PATIENT
  Sex: Female
  Weight: 80.812 kg

DRUGS (3)
  1. MERIDIA [Suspect]
     Indication: WEIGHT CONTROL
     Dates: start: 20091029, end: 20091111
  2. IBUPROFEN [Concomitant]
     Indication: HEADACHE
  3. IBUPROFEN [Concomitant]
     Indication: MENSTRUAL DISORDER

REACTIONS (5)
  - DEPRESSED MOOD [None]
  - DIZZINESS [None]
  - FEELING ABNORMAL [None]
  - FOOD CRAVING [None]
  - HUNGER [None]
